FAERS Safety Report 5528840-6 (Version None)
Quarter: 2007Q4

REPORT INFORMATION
  Report Type: 
  Country: None (occurrence: None)
  Receive Date: 20071113
  Receipt Date: 20070718
  Transmission Date: 20080405
  Serious: No
  Sender: FDA-Public Use
  Company Number: 200715227US

PATIENT
  Age: 53 Year
  Sex: Female

DRUGS (9)
  1. APIDRA [Suspect]
     Indication: TYPE 2 DIABETES MELLITUS
     Dosage: 20 U
     Dates: start: 20070711
  2. OPTICLIK [Suspect]
     Indication: TYPE 2 DIABETES MELLITUS
     Dates: start: 20070711
  3. LANTUS [Concomitant]
  4. LISINOPRIL [Concomitant]
  5. ADENOSINE (TRICOR /00090101/) [Concomitant]
  6. OXYCODONE HYDROCHLORIDE (OXYCONTIN) [Concomitant]
  7. LORAZEPAM [Concomitant]
  8. QUETIAPINE FUMARATE (SEROQUEL /01270902/) [Concomitant]
  9. DULOXETINE HYDROCHLORIDE (CYMBALTA) [Concomitant]

REACTIONS (3)
  - BLOOD GLUCOSE DECREASED [None]
  - INJECTION SITE BRUISING [None]
  - INJECTION SITE HAEMORRHAGE [None]
